FAERS Safety Report 6892377-2 (Version None)
Quarter: 2010Q3

REPORT INFORMATION
  Report Type: 
  Country: None (occurrence: None)
  Receive Date: 20100731
  Receipt Date: 20080507
  Transmission Date: 20110219
  Serious: No
  Sender: FDA-Public Use
  Company Number: US-PFIZER INC-2008039675

PATIENT
  Sex: Female
  Weight: 58.2 kg

DRUGS (4)
  1. NORVASC [Suspect]
     Indication: HYPERTENSION
     Dates: start: 20080425
  2. CORGARD [Concomitant]
  3. SYNTHROID [Concomitant]
  4. RESTORIL [Concomitant]

REACTIONS (2)
  - BLOOD CHOLESTEROL INCREASED [None]
  - DIARRHOEA [None]
